FAERS Safety Report 19399235 (Version 1)
Quarter: 2021Q2

REPORT INFORMATION
  Report Type: Spontaneous
  Country: GB (occurrence: GB)
  Receive Date: 20210610
  Receipt Date: 20210610
  Transmission Date: 20210717
  Serious: Yes (Other)
  Sender: FDA-Public Use
  Company Number: GB-MYLANLABS-2021M1033663

PATIENT
  Age: 61 Year
  Sex: Female
  Weight: 50.8 kg

DRUGS (1)
  1. PRAMIPEXOLE. [Suspect]
     Active Substance: PRAMIPEXOLE
     Indication: RESTLESS LEGS SYNDROME
     Dosage: 6 DOSAGE FORM, QD(6 A DAY)
     Route: 048
     Dates: start: 20180101, end: 20210523

REACTIONS (1)
  - Obsessive-compulsive symptom [Recovered/Resolved]

NARRATIVE: CASE EVENT DATE: 20190101
